FAERS Safety Report 21142845 (Version 1)
Quarter: 2022Q3

REPORT INFORMATION
  Report Type: Spontaneous
  Country: US (occurrence: None)
  Receive Date: 20220728
  Receipt Date: 20220728
  Transmission Date: 20221027
  Serious: Yes (Other)
  Sender: FDA-Public Use
  Company Number: None

PATIENT
  Age: 51 Year
  Sex: Male
  Weight: 112.5 kg

DRUGS (5)
  1. MAGNESIUM CITRATE [Suspect]
     Active Substance: MAGNESIUM CITRATE
     Indication: Enema administration
     Dosage: OTHER QUANTITY : 1 3;?FREQUENCY : AS NEEDED;?
     Route: 048
  2. DEVICE [Concomitant]
     Active Substance: DEVICE
  3. HERBALS\TURMERIC [Concomitant]
     Active Substance: HERBALS\TURMERIC
  4. ONE-A-DAY NOS [Concomitant]
     Active Substance: MINERALS\VITAMINS
  5. Citamin D3 [Concomitant]

REACTIONS (2)
  - Constipation [None]
  - Hepatic enzyme increased [None]

NARRATIVE: CASE EVENT DATE: 20220101
